FAERS Safety Report 11882783 (Version 1)
Quarter: 2015Q4

REPORT INFORMATION
  Report Type: Spontaneous
  Country: FR (occurrence: FR)
  Receive Date: 20151231
  Receipt Date: 20151231
  Transmission Date: 20160305
  Serious: Yes (Death, Other)
  Sender: FDA-Public Use
  Company Number: FR-SA-2015SA221784

PATIENT
  Age: 71 Year
  Sex: Male

DRUGS (7)
  1. LOVENOX [Suspect]
     Active Substance: ENOXAPARIN SODIUM
     Route: 058
     Dates: start: 201511, end: 20151126
  2. TERALITHE [Concomitant]
     Active Substance: LITHIUM CARBONATE
  3. CANDESARTAN [Concomitant]
     Active Substance: CANDESARTAN
  4. AVLOCARDYL [Concomitant]
     Active Substance: PROPRANOLOL HYDROCHLORIDE
  5. CRESTOR [Concomitant]
     Active Substance: ROSUVASTATIN CALCIUM
  6. KARDEGIC [Suspect]
     Active Substance: ASPIRIN LYSINE
     Indication: CARDIOVASCULAR EVENT PROPHYLAXIS
     Route: 048
     Dates: end: 20151125
  7. TIMOPTOL [Concomitant]
     Active Substance: TIMOLOL

REACTIONS (4)
  - Traumatic haemothorax [Fatal]
  - Cardio-respiratory arrest [Recovered/Resolved]
  - Shock haemorrhagic [Fatal]
  - Anaemia [Not Recovered/Not Resolved]

NARRATIVE: CASE EVENT DATE: 20151126
